FAERS Safety Report 16437814 (Version 1)
Quarter: 2019Q2

REPORT INFORMATION
  Report Type: Spontaneous
  Country: US (occurrence: US)
  Receive Date: 20190616
  Receipt Date: 20190616
  Transmission Date: 20190711
  Serious: No
  Sender: FDA-Public Use
  Company Number: US-ASTRAZENECA-2019SE69989

PATIENT
  Sex: Female

DRUGS (3)
  1. BONIVA [Concomitant]
     Active Substance: IBANDRONATE SODIUM
  2. SYMBICORT [Suspect]
     Active Substance: BUDESONIDE\FORMOTEROL FUMARATE DIHYDRATE
     Indication: ALLERGIC BRONCHITIS
     Dosage: 160/4.5 MCG 1 PUFF TWICE DAILY
     Route: 055
     Dates: start: 2015
  3. VENTOLIN [Concomitant]
     Active Substance: ALBUTEROL SULFATE

REACTIONS (5)
  - Body height decreased [Unknown]
  - Osteoporosis [Unknown]
  - Device issue [Unknown]
  - Off label use [Not Recovered/Not Resolved]
  - Intentional device misuse [Unknown]
